FAERS Safety Report 6546388-7 (Version None)
Quarter: 2010Q1

REPORT INFORMATION
  Report Type: 
  Country: None (occurrence: None)
  Receive Date: 20100119
  Receipt Date: 20100104
  Transmission Date: 20100710
  Serious: Yes (Other)
  Sender: FDA-Public Use
  Company Number: 2009AC000043

PATIENT
  Age: 72 Year
  Sex: Male
  Weight: 91 kg

DRUGS (80)
  1. DIGOXIN [Suspect]
     Dosage: 0.125 MG;QD;PO
     Route: 048
  2. DIGOXIN [Suspect]
     Dosage: 125 MCG; PO
     Route: 048
     Dates: start: 20050701
  3. ZOCOR [Concomitant]
  4. COUMADIN [Concomitant]
  5. CEPHULAC [Concomitant]
  6. MAGNESIUM [Concomitant]
  7. AMIODARONE HCL [Concomitant]
  8. ASPIRIN [Concomitant]
  9. PEPCID [Concomitant]
  10. HALDOL [Concomitant]
  11. PROBENECID [Concomitant]
  12. JANUVIA [Concomitant]
  13. GLIMEPIRIDE [Concomitant]
  14. DOCUSATE [Concomitant]
  15. COZAAR [Concomitant]
  16. COREG [Concomitant]
  17. DOXAZOSIN MESYLATE [Concomitant]
  18. SLOW-MAGNESIUM [Concomitant]
  19. ZAROXOLYN [Concomitant]
  20. SYSTANE EYE DROPS [Concomitant]
  21. KIONEX [Concomitant]
  22. AMOX TR-POTASSIUM [Concomitant]
  23. PROBENECID [Concomitant]
  24. DOXAZOSIN MESYLATE [Concomitant]
  25. OMEPRAZOLE [Concomitant]
  26. FUROSEMIDE [Concomitant]
  27. FLOMAX [Concomitant]
  28. SIMVASTATIN [Concomitant]
  29. CARVEDILOL [Concomitant]
  30. JANUVIA [Concomitant]
  31. COZAAR [Concomitant]
  32. ALLOPURINOL [Concomitant]
  33. AMLODIPINE [Concomitant]
  34. MIDODRINE HCL [Concomitant]
  35. METOLAZONE [Concomitant]
  36. MUPIROCIN [Concomitant]
  37. PANTOPRAZOLE [Concomitant]
  38. FLUDROCORTISONE [Concomitant]
  39. TRICOR [Concomitant]
  40. CRESTOR [Concomitant]
  41. CALCITRIOL [Concomitant]
  42. NYSTATIN [Concomitant]
  43. PROTONIX [Concomitant]
  44. RIFAMPIN [Concomitant]
  45. AVELOX [Concomitant]
  46. BYETTA [Concomitant]
  47. ACTOS [Concomitant]
  48. ALTABAX [Concomitant]
  49. COREG [Concomitant]
  50. ENABLEX [Concomitant]
  51. OMACOR [Concomitant]
  52. NIASPAN [Concomitant]
  53. HYZAAR [Concomitant]
  54. AVANDARYL [Concomitant]
  55. EPOGEN [Concomitant]
  56. LAMISIL [Concomitant]
  57. PENLAC [Concomitant]
  58. METFORMIN HCL [Concomitant]
  59. QUINAPRIL HCL [Concomitant]
  60. NOVOLOG MIX 70/30 [Concomitant]
  61. ACTONEL [Concomitant]
  62. PERCOCET [Concomitant]
  63. ALLOPURINOL [Concomitant]
  64. COLACE [Concomitant]
  65. CARVEDILOL [Concomitant]
  66. DOXAZOSIN MESYLATE [Concomitant]
  67. ESOMEPRAZOLE [Concomitant]
  68. GLUCAGON [Concomitant]
  69. HEPARIN [Concomitant]
  70. INSULIN [Concomitant]
  71. ZOFRAN [Concomitant]
  72. SIMVASTATIN [Concomitant]
  73. TIGECYCLINE [Concomitant]
  74. SITAGLIPTIN [Concomitant]
  75. FERROUS SULFATE TAB [Concomitant]
  76. FLOMAX [Concomitant]
  77. PROBENACID [Concomitant]
  78. SLOW-MAGNESIUM [Concomitant]
  79. ZAROXOLYN [Concomitant]
  80. FUROSEMIDE [Concomitant]

REACTIONS (31)
  - ANXIETY [None]
  - ARRHYTHMIA [None]
  - ASTHENIA [None]
  - ATRIAL FIBRILLATION [None]
  - AZOTAEMIA [None]
  - BLOOD GLUCOSE INCREASED [None]
  - CARDIAC FAILURE CONGESTIVE [None]
  - CORONARY ARTERY DISEASE [None]
  - DEEP VEIN THROMBOSIS [None]
  - DIZZINESS [None]
  - DYSPEPSIA [None]
  - ELECTROCARDIOGRAM ABNORMAL [None]
  - FLUID OVERLOAD [None]
  - HAEMATOCRIT DECREASED [None]
  - HYPERKALAEMIA [None]
  - INJURY [None]
  - ISCHAEMIA [None]
  - LIMB INJURY [None]
  - LOSS OF CONSCIOUSNESS [None]
  - MALIGNANT HYPERTENSION [None]
  - METABOLIC ACIDOSIS [None]
  - MYOCARDIAL INFARCTION [None]
  - NAUSEA [None]
  - OSTEOMYELITIS [None]
  - PAIN [None]
  - PNEUMONIA [None]
  - RENAL FAILURE CHRONIC [None]
  - SEPSIS [None]
  - TOE AMPUTATION [None]
  - TRAUMATIC LUNG INJURY [None]
  - WEIGHT DECREASED [None]
